FAERS Safety Report 16309009 (Version 5)
Quarter: 2021Q1

REPORT INFORMATION
  Report Type: Spontaneous
  Country: US (occurrence: US)
  Receive Date: 20190514
  Receipt Date: 20210325
  Transmission Date: 20210419
  Serious: No
  Sender: FDA-Public Use
  Company Number: US-PFIZER INC-2019198872

PATIENT
  Age: 76 Year
  Sex: Female

DRUGS (2)
  1. XELJANZ [Suspect]
     Active Substance: TOFACITINIB CITRATE
     Dosage: 5 MG
  2. XELJANZ [Suspect]
     Active Substance: TOFACITINIB CITRATE
     Dosage: 10 MG
     Dates: start: 20201012, end: 20210204

REACTIONS (4)
  - Blood cholesterol increased [Unknown]
  - Illness [Unknown]
  - Feeling abnormal [Unknown]
  - Drug ineffective [Unknown]
